FAERS Safety Report 9278963 (Version 1)
Quarter: 2013Q2

REPORT INFORMATION
  Report Type: Spontaneous
  Country: US (occurrence: US)
  Receive Date: 20130508
  Receipt Date: 20130508
  Transmission Date: 20140414
  Serious: Yes (Other)
  Sender: FDA-Public Use
  Company Number: US-BAYER-2013-056392

PATIENT
  Age: 42 Year
  Sex: Female
  Weight: 72.56 kg

DRUGS (4)
  1. YASMIN [Suspect]
     Indication: DYSFUNCTIONAL UTERINE BLEEDING
  2. YASMIN [Suspect]
     Indication: OVARIAN CYST
  3. YASMIN [Suspect]
     Indication: MENORRHAGIA
  4. ACCUTANE [Concomitant]
     Dosage: UNK
     Dates: start: 20060314

REACTIONS (1)
  - Deep vein thrombosis [Recovered/Resolved]
